FAERS Safety Report 10712649 (Version 1)
Quarter: 2015Q1

REPORT INFORMATION
  Report Type: Spontaneous
  Country: US (occurrence: None)
  Receive Date: 20150114
  Receipt Date: 20150114
  Transmission Date: 20150721
  Serious: Yes (Hospitalization)
  Sender: FDA-Public Use
  Company Number: None

PATIENT
  Age: 60 Year
  Sex: Female
  Weight: 41.8 kg

DRUGS (19)
  1. XENADERM [Concomitant]
     Active Substance: BALSAM PERU OIL\CASTOR OIL\TRYPSIN
  2. PAZOPANIB SUSPENSION [Suspect]
     Active Substance: PAZOPANIB
     Indication: SQUAMOUS CELL CARCINOMA OF HEAD AND NECK
     Route: 048
     Dates: start: 20140821, end: 20141226
  3. FENTANYL. [Concomitant]
     Active Substance: FENTANYL
  4. HYDROCODONE [Concomitant]
     Active Substance: HYDROCODONE
  5. OXYCODONE [Concomitant]
     Active Substance: OXYCODONE
  6. CETUXIMAB [Suspect]
     Active Substance: CETUXIMAB
     Indication: SQUAMOUS CELL CARCINOMA OF HEAD AND NECK
     Dates: start: 20140821, end: 20150102
  7. AMLODIPINE [Concomitant]
     Active Substance: AMLODIPINE BESYLATE
  8. VASOLEX [Concomitant]
     Active Substance: BALSAM PERU\CASTOR OIL\TRYPSIN
  9. CETUXIMAB [Suspect]
     Active Substance: CETUXIMAB
     Indication: METASTATIC SQUAMOUS CELL CARCINOMA
     Dates: start: 20140821, end: 20150102
  10. LEVOTHYROXINE [Concomitant]
     Active Substance: LEVOTHYROXINE
  11. SCOPOLAMINE [Concomitant]
     Active Substance: SCOPOLAMINE
  12. POTASSIUM CHLORIDE. [Concomitant]
     Active Substance: POTASSIUM CHLORIDE
  13. MORPHINE [Concomitant]
     Active Substance: MORPHINE
  14. MEROPENEM. [Concomitant]
     Active Substance: MEROPENEM
  15. LIDOCAINE-PRILOCAINE [Concomitant]
     Active Substance: LIDOCAINE\PRILOCAINE
  16. NYSTATIN. [Concomitant]
     Active Substance: NYSTATIN
  17. POLYETHYLENE GYLCOL [Concomitant]
     Active Substance: POLYETHYLENE GLYCOLS
  18. PAZOPANIB SUSPENSION [Suspect]
     Active Substance: PAZOPANIB
     Indication: METASTATIC SQUAMOUS CELL CARCINOMA
     Route: 048
     Dates: start: 20140821, end: 20141226
  19. HEPARIN SODIUM. [Concomitant]
     Active Substance: HEPARIN SODIUM

REACTIONS (2)
  - Pleural effusion [None]
  - Dehydration [None]

NARRATIVE: CASE EVENT DATE: 20150106
